FAERS Safety Report 5409754-9 (Version None)
Quarter: 2007Q3

REPORT INFORMATION
  Report Type: 
  Country: None (occurrence: None)
  Receive Date: 20070809
  Receipt Date: 20070808
  Transmission Date: 20080115
  Serious: Yes (Hospitalization)
  Sender: FDA-Public Use
  Company Number: B0482543A

PATIENT
  Age: 28 Year
  Sex: Female

DRUGS (2)
  1. AUGMENTIN '125' [Suspect]
     Dosage: 1G TWICE PER DAY
     Route: 048
     Dates: start: 20070704, end: 20070712
  2. NUROFEN [Suspect]
     Dosage: 2UNIT TWICE PER DAY
     Route: 065
     Dates: start: 20070711, end: 20070712

REACTIONS (2)
  - AGRANULOCYTOSIS [None]
  - MALAISE [None]
